FAERS Safety Report 9226547 (Version 3)
Quarter: 2013Q2

REPORT INFORMATION
  Report Type: Spontaneous
  Country: US (occurrence: US)
  Receive Date: 20130412
  Receipt Date: 20130531
  Transmission Date: 20140414
  Serious: Yes (Hospitalization)
  Sender: FDA-Public Use
  Company Number: US-BIOGENIDEC-2013BI031517

PATIENT
  Age: 58 Year
  Sex: Female

DRUGS (19)
  1. TYSABRI [Suspect]
     Indication: MULTIPLE SCLEROSIS
     Route: 042
     Dates: start: 20130208
  2. AVONEX [Concomitant]
     Indication: MULTIPLE SCLEROSIS
     Route: 030
     Dates: start: 1995
  3. ASPIRIN [Concomitant]
  4. LIPITOR [Concomitant]
  5. TEMOVATE [Concomitant]
  6. SANCTURA [Concomitant]
  7. PROTOPIC [Concomitant]
  8. WELLBUTRIN [Concomitant]
  9. EXELON [Concomitant]
  10. FOSOMAX [Concomitant]
  11. LEXAPRO [Concomitant]
  12. DALFAMPRIDINE [Concomitant]
  13. PREVIDENT [Concomitant]
  14. CALCIUM VITAMIN D [Concomitant]
  15. TROSPIUM [Concomitant]
     Indication: NEUROGENIC BLADDER
  16. RIVASTIGMINE [Concomitant]
     Indication: NERVOUS SYSTEM DISORDER
  17. MEMANTINE [Concomitant]
     Indication: NERVOUS SYSTEM DISORDER
  18. ALENDRONATE [Concomitant]
     Indication: OSTEOARTHRITIS
  19. SOLUMEDROL [Concomitant]

REACTIONS (5)
  - Myocardial infarction [Recovered/Resolved]
  - Post procedural haemorrhage [Unknown]
  - Nasopharyngitis [Unknown]
  - Chills [Unknown]
  - Tremor [Unknown]
